FAERS Safety Report 17914518 (Version 2)
Quarter: 2020Q2

REPORT INFORMATION
  Report Type: Report from Study
  Country: None (occurrence: US)
  Receive Date: 20200618
  Receipt Date: 20200626
  Transmission Date: 20200714
  Serious: Yes (Hospitalization)
  Sender: FDA-Public Use
  Company Number: US-ABBVIE-20P-163-3430026-00

PATIENT
  Age: 73 Year
  Sex: Male
  Weight: 65.1 kg

DRUGS (29)
  1. AZACITIDINE. [Suspect]
     Active Substance: AZACITIDINE
     Dosage: DAYS 1-7 OF EACH 28-DAY CYCLE
     Route: 042
     Dates: start: 20190301, end: 20200601
  2. BACTRIM [Concomitant]
     Active Substance: SULFAMETHOXAZOLE\TRIMETHOPRIM
     Indication: INFECTION PROPHYLAXIS
     Dosage: 800-160 MG; FREQUENCY: Q12HRS, SAT + SUN
     Route: 048
     Dates: start: 20180711
  3. SODIUM CHLORIDE. [Concomitant]
     Active Substance: SODIUM CHLORIDE
     Indication: HYPONATRAEMIA
     Route: 042
     Dates: start: 20180516
  4. DEXTROSE 5% + SODIUM CHLORIDE 0.45% WITH SODIUM BICARBONATE [Concomitant]
     Indication: PROPHYLAXIS
     Dates: start: 20180515, end: 20180517
  5. NORMAL SALINE SOLUTION [Concomitant]
     Active Substance: SODIUM CHLORIDE
     Indication: PROPHYLAXIS
     Route: 042
     Dates: start: 20180524, end: 20180524
  6. PROTONIX [Concomitant]
     Active Substance: PANTOPRAZOLE SODIUM
     Indication: GASTROOESOPHAGEAL REFLUX DISEASE
     Route: 048
     Dates: start: 20180516
  7. RADIOMIX [Concomitant]
     Indication: PROPHYLAXIS
     Dosage: SWISH AND SPIT
     Dates: start: 20180522
  8. DEXTROSE 5% + SODIUM CHLORIDE 0.45% WITH SODIUM BICARBONATE [Concomitant]
     Dates: start: 20180529, end: 20180529
  9. VENETOCLAX. [Suspect]
     Active Substance: VENETOCLAX
     Route: 048
     Dates: start: 20200619
  10. AZACITIDINE. [Suspect]
     Active Substance: AZACITIDINE
     Indication: ACUTE MYELOID LEUKAEMIA
     Dosage: DAYS 1-7 OF EACH 28-DAY CYCLE
     Route: 042
     Dates: start: 20180529, end: 20181022
  11. AZACITIDINE. [Suspect]
     Active Substance: AZACITIDINE
     Dosage: DAYS 1-7 OF EACH 28-DAY CYCLE
     Route: 042
     Dates: start: 20181120, end: 20181224
  12. MICAFUNGIN. [Concomitant]
     Active Substance: MICAFUNGIN SODIUM
     Indication: ANTIFUNGAL PROPHYLAXIS
     Route: 042
     Dates: start: 20180516
  13. SODIUM CHLORIDE. [Concomitant]
     Active Substance: SODIUM CHLORIDE
     Indication: ELECTROLYTE SUBSTITUTION THERAPY
     Dosage: 30-75 ML/HR, CONTINUOUS
     Route: 042
     Dates: start: 20200602, end: 20200616
  14. DEXTROSE 5% + SODIUM CHLORIDE 0.45% WITH SODIUM BICARBONATE [Concomitant]
     Dates: start: 20180527, end: 20180528
  15. DEXTROSE 5% + SODIUM CHLORIDE 0.45% WITH SODIUM BICARBONATE [Concomitant]
     Dates: start: 20180613, end: 20180711
  16. VENETOCLAX. [Suspect]
     Active Substance: VENETOCLAX
     Route: 048
     Dates: start: 20200617, end: 20200618
  17. ALLOPURINOL. [Concomitant]
     Active Substance: ALLOPURINOL
     Indication: PROPHYLAXIS
     Route: 048
     Dates: start: 20180516, end: 20180711
  18. SODIUM CHLORIDE. [Concomitant]
     Active Substance: SODIUM CHLORIDE
     Indication: BIOPSY BONE MARROW
     Dosage: 30 ML/HR, CONTINUOUS
     Route: 042
     Dates: start: 20200128, end: 20200128
  19. VENETOCLAX. [Suspect]
     Active Substance: VENETOCLAX
     Route: 048
     Dates: start: 20180530, end: 20180530
  20. PHOSPHA 250 NEUTRAL [Concomitant]
     Active Substance: POTASSIUM PHOSPHATE, MONOBASIC\SODIUM PHOSPHATE, DIBASIC, ANHYDROUS\SODIUM PHOSPHATE, MONOBASIC, MONOHYDRATE
     Indication: HYPOPHOSPHATAEMIA
     Dosage: 155-858-130 MG
     Route: 048
     Dates: start: 20190506, end: 20200617
  21. AZACITIDINE. [Suspect]
     Active Substance: AZACITIDINE
     Dosage: DAYS 1-7 OF EACH 28-DAY CYCLE
     Route: 042
     Dates: start: 20190123, end: 20190129
  22. NORMAL SALINE SOLUTION [Concomitant]
     Active Substance: SODIUM CHLORIDE
     Route: 042
     Dates: start: 20180606, end: 20180606
  23. ACYCLOVIR. [Concomitant]
     Active Substance: ACYCLOVIR
     Indication: ANTIVIRAL PROPHYLAXIS
     Route: 048
     Dates: start: 20180516
  24. DEXTROSE 5% + SODIUM CHLORIDE 0.45% WITH SODIUM BICARBONATE [Concomitant]
     Dates: start: 20180530, end: 20180613
  25. VENETOCLAX. [Suspect]
     Active Substance: VENETOCLAX
     Indication: ACUTE MYELOID LEUKAEMIA
     Route: 048
     Dates: start: 20180529, end: 20180529
  26. ZOFRAN [Concomitant]
     Active Substance: ONDANSETRON HYDROCHLORIDE
     Indication: NAUSEA
     Route: 042
     Dates: start: 20180529
  27. DEXTROSE 5% + SODIUM CHLORIDE 0.45% WITH SODIUM BICARBONATE [Concomitant]
     Dates: start: 20180517, end: 20180527
  28. VENETOCLAX. [Suspect]
     Active Substance: VENETOCLAX
     Route: 048
     Dates: start: 20180531, end: 20200601
  29. AZACITIDINE. [Suspect]
     Active Substance: AZACITIDINE
     Dosage: DAYS 1-7 OF EACH 28-DAY CYCLE
     Route: 042
     Dates: start: 20200619

REACTIONS (2)
  - Febrile neutropenia [Recovered/Resolved]
  - Pneumonia [Not Recovered/Not Resolved]

NARRATIVE: CASE EVENT DATE: 20200602
